FAERS Safety Report 9187015 (Version 2)
Quarter: 2013Q2

REPORT INFORMATION
  Report Type: Spontaneous
  Country: US (occurrence: US)
  Receive Date: 20130325
  Receipt Date: 20130529
  Transmission Date: 20140414
  Serious: No
  Sender: FDA-Public Use
  Company Number: US-PFIZER INC-2013093054

PATIENT
  Age: 45 Year
  Sex: Male

DRUGS (7)
  1. CHANTIX [Suspect]
     Indication: SMOKING CESSATION THERAPY
     Dosage: STARTER PACK
     Route: 048
     Dates: start: 20090609
  2. CHANTIX [Suspect]
     Dosage: UNK
     Route: 048
     Dates: start: 20090621, end: 20090817
  3. CHANTIX [Suspect]
     Dosage: 1 MG, 2X/DAY
     Route: 048
     Dates: start: 20090721
  4. ROSUVASTATIN CA [Concomitant]
     Indication: BLOOD CHOLESTEROL ABNORMAL
     Dosage: 10 MG, 1X/DAY (20MG TABLETS, ONE-HALF TABLET AT BEDTIME WITH A SNACK)
     Route: 048
     Dates: start: 20090725
  5. OXYCODONE/PARACETAMOL [Concomitant]
     Indication: PAIN
     Dosage: 3 DF, 3X/DAY (5MG/325MG TABLETS, THREE TABLETS EVERY 8 HOURS AS NEEDED)
     Route: 048
     Dates: start: 20090728
  6. METHADONE [Concomitant]
     Dosage: 15 MG, 3X/DAY (5 MG TABLETS, THREE TABLETS THREE TIMES A DAY)
     Route: 048
     Dates: start: 20090728
  7. BUPROPION [Concomitant]
     Dosage: 75MG TABLETS TWO TABLETS ORALLY EVERY MORNING AND ONE TABLET EVERY EVENING LAST DOSE BEFORE 5PM
     Route: 048
     Dates: start: 20090803

REACTIONS (1)
  - Depression [Unknown]
